FAERS Safety Report 5568360-6 (Version None)
Quarter: 2007Q4

REPORT INFORMATION
  Report Type: 
  Country: None (occurrence: None)
  Receive Date: 20071220
  Receipt Date: 20071210
  Transmission Date: 20080405
  Serious: Yes (Hospitalization)
  Sender: FDA-Public Use
  Company Number: NO-AMGEN-US256666

PATIENT
  Sex: Male

DRUGS (13)
  1. ENBREL [Suspect]
     Indication: PSORIASIS
     Route: 058
     Dates: start: 20071012, end: 20071109
  2. ALBYL-E [Concomitant]
     Route: 048
  3. SYMBICORT [Concomitant]
     Route: 055
  4. ATACAND [Concomitant]
     Dosage: 16 MG EVERY
     Route: 048
  5. FURIX [Concomitant]
     Dosage: 40 MG EVERY
  6. PARALGIN FORTE [Concomitant]
     Route: 048
  7. ADALAT [Concomitant]
     Dosage: 30 MG EVERY
     Route: 048
  8. NITROGLYCERIN [Concomitant]
     Dosage: 1 DOSAGE FORM AS NECESSARY
  9. METFORMIN HCL [Concomitant]
     Route: 048
  10. INSULATARD [Concomitant]
  11. SIMVASTATIN [Concomitant]
     Dosage: 20 MG EVERY
     Route: 048
  12. ATARAX [Concomitant]
     Route: 048
  13. VENTOLIN [Concomitant]
     Dosage: AS NECESSSARY
     Route: 055

REACTIONS (2)
  - DYSPNOEA [None]
  - GENERALISED OEDEMA [None]
